FAERS Safety Report 17740850 (Version 3)
Quarter: 2020Q2

REPORT INFORMATION
  Report Type: Report from Study
  Country: None (occurrence: DE)
  Receive Date: 20200504
  Receipt Date: 20200527
  Transmission Date: 20200714
  Serious: Yes (Hospitalization)
  Sender: FDA-Public Use
  Company Number: DE-ABBVIE-20K-062-3387797-00

PATIENT
  Age: 53 Year
  Sex: Female
  Weight: 67 kg

DRUGS (4)
  1. HUMIRA [Suspect]
     Active Substance: ADALIMUMAB
     Indication: RHEUMATOID ARTHRITIS
     Route: 058
     Dates: start: 20090428, end: 201902
  2. HUMIRA [Suspect]
     Active Substance: ADALIMUMAB
     Route: 058
     Dates: start: 201903, end: 2019
  3. HUMIRA [Suspect]
     Active Substance: ADALIMUMAB
     Indication: RHEUMATOID ARTHRITIS
     Route: 058
     Dates: start: 201902, end: 201903
  4. HUMIRA [Suspect]
     Active Substance: ADALIMUMAB
     Route: 058
     Dates: start: 20200203

REACTIONS (15)
  - Postoperative wound infection [Recovered/Resolved with Sequelae]
  - Osteopenia [Unknown]
  - Blood urea decreased [Unknown]
  - C-reactive protein increased [Unknown]
  - Activated partial thromboplastin time shortened [Unknown]
  - White blood cell count increased [Unknown]
  - Skin laceration [Recovered/Resolved with Sequelae]
  - Fall [Recovered/Resolved with Sequelae]
  - Impaired healing [Recovered/Resolved with Sequelae]
  - Hip deformity [Unknown]
  - Spinal osteoarthritis [Unknown]
  - Blood lactate dehydrogenase decreased [Unknown]
  - Peripheral arterial occlusive disease [Unknown]
  - Mean platelet volume decreased [Unknown]
  - Blood creatine phosphokinase MB increased [Unknown]

NARRATIVE: CASE EVENT DATE: 201004
